FAERS Safety Report 5429451-3 (Version None)
Quarter: 2007Q3

REPORT INFORMATION
  Report Type: 
  Country: None (occurrence: None)
  Receive Date: 20070829
  Receipt Date: 20070820
  Transmission Date: 20080115
  Serious: Yes (Hospitalization)
  Sender: FDA-Public Use
  Company Number: DE-ELI_LILLY_AND_COMPANY-DE200708004225

PATIENT
  Age: 43 Year
  Sex: Male

DRUGS (1)
  1. ZYPREXA [Suspect]
     Indication: SCHIZOPHRENIA
     Dosage: 20 MG, UNKNOWN
     Route: 048
     Dates: start: 20070601, end: 20070606

REACTIONS (1)
  - ATRIOVENTRICULAR BLOCK COMPLETE [None]
